FAERS Safety Report 7590781-0 (Version None)
Quarter: 2011Q3

REPORT INFORMATION
  Report Type: 
  Country: None (occurrence: None)
  Receive Date: 20110705
  Receipt Date: 20110622
  Transmission Date: 20111222
  Serious: Yes (Other)
  Sender: FDA-Public Use
  Company Number: PHHY2011DE55917

PATIENT
  Age: 63 Year
  Sex: Female

DRUGS (1)
  1. PAMIDRONATE DISODIUM [Suspect]
     Indication: BREAST CANCER
     Dosage: UNK
     Dates: start: 20000301, end: 20061214

REACTIONS (3)
  - DEVICE MATERIAL ISSUE [None]
  - OSTEONECROSIS OF JAW [None]
  - ERYTHEMA [None]
